FAERS Safety Report 5764394-7 (Version None)
Quarter: 2008Q2

REPORT INFORMATION
  Report Type: 
  Country: None (occurrence: None)
  Receive Date: 20080604
  Receipt Date: 20080521
  Transmission Date: 20081010
  Serious: Yes (Other)
  Sender: FDA-Public Use
  Company Number: 026052

PATIENT
  Age: 31 Year
  Sex: Female

DRUGS (2)
  1. CLARAVIS [Suspect]
     Dosage: 10 MG, QD IN PM, ORAL; 60 MG, QD IN AM, ORAL
     Route: 048
     Dates: start: 20070927, end: 20080314
  2. CLARAVIS [Suspect]
     Dosage: 10 MG, QD IN PM, ORAL; 60 MG, QD IN AM, ORAL
     Route: 048
     Dates: start: 20070927, end: 20080314

REACTIONS (4)
  - DRUG DOSE OMISSION [None]
  - DRUG EXPOSURE DURING PREGNANCY [None]
  - TREATMENT NONCOMPLIANCE [None]
  - UNINTENDED PREGNANCY [None]
